FAERS Safety Report 8724940 (Version 2)
Quarter: 2015Q2

REPORT INFORMATION
  Report Type: Report from Study
  Country: US (occurrence: US)
  Receive Date: 20120815
  Receipt Date: 20150401
  Transmission Date: 20150821
  Serious: Yes (Death)
  Sender: FDA-Public Use
  Company Number: US-ROCHE-1101050

PATIENT
  Sex: Female

DRUGS (11)
  1. OPIUM [Concomitant]
     Active Substance: OPIUM
     Dosage: USE AS DIRECTED
     Route: 065
  2. OXYCODON [Concomitant]
     Active Substance: OXYCODONE
     Dosage: TAKE 2 TABLETS
     Route: 048
  3. MARINOL (UNITED STATES) [Concomitant]
     Route: 048
  4. COLACE [Concomitant]
     Active Substance: DOCUSATE SODIUM
     Dosage: TAKE AS NEEDED
     Route: 048
  5. LEVONOX (LEVOFLOXACIN) [Concomitant]
     Active Substance: LEVOFLOXACIN
     Dosage: 50MG/0.6ML-INJECT 0.5 ML
     Route: 065
  6. AVASTIN [Suspect]
     Active Substance: BEVACIZUMAB
     Indication: OVARIAN CANCER
  7. CYCLOPHOSPHAMIDE. [Concomitant]
     Active Substance: CYCLOPHOSPHAMIDE
     Dosage: TAKE ONE TABLET
     Route: 048
  8. CYTOXAN [Concomitant]
     Active Substance: CYCLOPHOSPHAMIDE
  9. AVASTIN [Suspect]
     Active Substance: BEVACIZUMAB
     Indication: GENITAL NEOPLASM MALIGNANT FEMALE
     Dosage: ON 12/NOV/2007, 26/NOV/2007 AND 10/DEC/2007, SHE RECEIVED 488 MG IV BEVACIZUMAB.
     Route: 042
     Dates: start: 20071029
  10. ATIVAN [Concomitant]
     Active Substance: LORAZEPAM
     Dosage: TAKE 1 TABLET
     Route: 048
  11. COMPAZINE [Concomitant]
     Active Substance: PROCHLORPERAZINE MALEATE
     Dosage: TAKE 1 TABLET.
     Route: 048

REACTIONS (5)
  - Death [Fatal]
  - Abdominal pain [Unknown]
  - Fatigue [Unknown]
  - Pain [Unknown]
  - Diarrhoea [Unknown]
